FAERS Safety Report 23279101 (Version 1)
Quarter: 2023Q4

REPORT INFORMATION
  Report Type: Spontaneous
  Country: CN (occurrence: CN)
  Receive Date: 20231209
  Receipt Date: 20231209
  Transmission Date: 20240110
  Serious: Yes (Other)
  Sender: FDA-Public Use
  Company Number: None

PATIENT
  Age: 69 Year
  Sex: Female

DRUGS (4)
  1. CYCLOPHOSPHAMIDE [Suspect]
     Active Substance: CYCLOPHOSPHAMIDE
     Indication: Breast cancer female
     Dosage: 0.95 G, ONE TIME IN ONE DAY, D1, DILUTED WITH 30 ML OF SODIUM CHLORIDE
     Route: 042
     Dates: start: 20231110, end: 20231110
  2. PIRARUBICIN HYDROCHLORIDE [Suspect]
     Active Substance: PIRARUBICIN HYDROCHLORIDE
     Indication: Breast cancer female
     Dosage: 80 MG, ONE TIME IN ONE DAY, D1, DILUTED WITH 30 ML OF GLUCOSE
     Route: 042
     Dates: start: 20231110, end: 20231110
  3. SODIUM CHLORIDE [Suspect]
     Active Substance: SODIUM CHLORIDE
     Indication: Medication dilution
     Dosage: 30 ML, ONE TIME IN ONE DAY, D1, USED TO DILUTE 0.95 G OF CYCLOPHOSPHAMIDE
     Route: 042
     Dates: start: 20231110, end: 20231110
  4. DEXTROSE [Suspect]
     Active Substance: DEXTROSE\DEXTROSE MONOHYDRATE
     Indication: Medication dilution
     Dosage: 30 ML, ONE TIME IN ONE DAY, D1, USED TO DILUTE 80 MG OF PIRARUBICIN HYDROCHLORIDE
     Route: 042
     Dates: start: 20231110, end: 20231110

REACTIONS (3)
  - Breast cancer female [Unknown]
  - Condition aggravated [Unknown]
  - Agranulocytosis [Recovered/Resolved]

NARRATIVE: CASE EVENT DATE: 20231123
